FAERS Safety Report 5154819-2 (Version None)
Quarter: 2006Q4

REPORT INFORMATION
  Report Type: 
  Country: None (occurrence: None)
  Receive Date: 20061121
  Receipt Date: 20061110
  Transmission Date: 20070319
  Serious: Yes (Death)
  Sender: FDA-Public Use
  Company Number: GB-JNJFOC-20060603795

PATIENT
  Sex: Female

DRUGS (9)
  1. DURAGESIC-50 [Suspect]
     Indication: ANALGESIC EFFECT
     Route: 062
  2. ORAMORPH SR [Concomitant]
     Indication: BREAKTHROUGH PAIN
     Route: 065
  3. CARBAMAZEPINE [Concomitant]
     Route: 065
  4. CARBAMAZEPINE [Concomitant]
     Indication: CONVULSION PROPHYLAXIS
     Route: 065
  5. DEXAMETHASONE TAB [Concomitant]
     Indication: SWELLING
     Route: 065
  6. PERINDOPRIL ERBUMINE [Concomitant]
     Indication: HYPERTENSION
     Route: 065
  7. QUININE SULFATE [Concomitant]
     Indication: MUSCLE SPASMS
     Route: 065
  8. RANITIDINE [Concomitant]
     Indication: DYSPEPSIA
     Route: 065
  9. ZOLPIDEM TARTRATE [Concomitant]
     Indication: SLEEP DISORDER THERAPY
     Route: 065

REACTIONS (8)
  - ACCIDENTAL OVERDOSE [None]
  - ANALGESIC DRUG LEVEL INCREASED [None]
  - DEATH [None]
  - DRUG INEFFECTIVE [None]
  - INCORRECT DRUG ADMINISTRATION RATE [None]
  - PHARMACEUTICAL PRODUCT COMPLAINT [None]
  - SOMNOLENCE [None]
  - WRONG TECHNIQUE IN DRUG USAGE PROCESS [None]
